FAERS Safety Report 7629773-1 (Version None)
Quarter: 2011Q3

REPORT INFORMATION
  Report Type: 
  Country: None (occurrence: None)
  Receive Date: 20110722
  Receipt Date: 20110718
  Transmission Date: 20111222
  Serious: Yes (Hospitalization, Other)
  Sender: FDA-Public Use
  Company Number: GB-B.I. PHARMACEUTICALS,INC./RIDGEFIELD-2011-DE-04174GD

PATIENT
  Age: 73 Year
  Sex: Female

DRUGS (3)
  1. RANITIDINE [Suspect]
     Indication: GASTROOESOPHAGEAL REFLUX DISEASE
     Dosage: 300 MG
  2. FUROSEMIDE [Suspect]
     Indication: HYPERTENSION
     Dosage: 20-40 MG
     Dates: start: 20050101
  3. OMEPRAZOLE [Suspect]
     Indication: GASTROOESOPHAGEAL REFLUX DISEASE
     Dosage: 20-40 MG
     Dates: start: 19990101

REACTIONS (14)
  - ABDOMINAL PAIN [None]
  - TETANY [None]
  - FALL [None]
  - HYPOCALCAEMIA [None]
  - ASTHENIA [None]
  - PARAESTHESIA [None]
  - ARTHRALGIA [None]
  - BALANCE DISORDER [None]
  - MUSCLE SPASMS [None]
  - CHEST PAIN [None]
  - LETHARGY [None]
  - HYPOMAGNESAEMIA [None]
  - CIRCULATORY COLLAPSE [None]
  - RASH [None]
